FAERS Safety Report 18967657 (Version 1)
Quarter: 2021Q1

REPORT INFORMATION
  Report Type: Spontaneous
  Country: US (occurrence: US)
  Receive Date: 20210304
  Receipt Date: 20210304
  Transmission Date: 20210420
  Serious: No
  Sender: FDA-Public Use
  Company Number: US-BAYER-2021-092638

PATIENT
  Age: 70 Year
  Sex: Male

DRUGS (1)
  1. MIRALAX [Suspect]
     Active Substance: POLYETHYLENE GLYCOL 3350
     Indication: CONSTIPATION
     Dosage: 17 G, QOD
     Route: 048
     Dates: start: 2001, end: 20210228

REACTIONS (4)
  - Abdominal discomfort [Unknown]
  - Product use in unapproved indication [None]
  - Abdominal distension [Unknown]
  - Abnormal faeces [Unknown]

NARRATIVE: CASE EVENT DATE: 2001
